FAERS Safety Report 25573768 (Version 4)
Quarter: 2025Q4

REPORT INFORMATION
  Report Type: Report from Study
  Country: US (occurrence: US)
  Receive Date: 20250717
  Receipt Date: 20251202
  Transmission Date: 20260118
  Serious: Yes (Other)
  Sender: MALLINCKRODT
  Company Number: US-MALLINCKRODT-MNK202504335

PATIENT
  Age: 70 Year
  Sex: Male
  Weight: 189 kg

DRUGS (2)
  1. CORTICOTROPIN [Suspect]
     Active Substance: CORTICOTROPIN
     Indication: Orbital myositis
     Dosage: 80 UNITS
     Route: 058
     Dates: start: 20250708, end: 202507
  2. CORTICOTROPIN [Suspect]
     Active Substance: CORTICOTROPIN
     Dosage: 40 UNITS
     Dates: start: 202507

REACTIONS (10)
  - Surgery [Unknown]
  - Blood pressure systolic increased [Unknown]
  - Flatulence [Unknown]
  - Eructation [Unknown]
  - Hiccups [Unknown]
  - Abdominal pain upper [Recovering/Resolving]
  - Chest discomfort [Unknown]
  - Oedema [Unknown]
  - Insomnia [Not Recovered/Not Resolved]
  - Weight increased [Recovering/Resolving]

NARRATIVE: CASE EVENT DATE: 20250701
